FAERS Safety Report 23020430 (Version 1)
Quarter: 2023Q4

REPORT INFORMATION
  Report Type: Spontaneous
  Country: ES (occurrence: ES)
  Receive Date: 20231003
  Receipt Date: 20231003
  Transmission Date: 20240109
  Serious: Yes (Hospitalization, Other)
  Sender: FDA-Public Use
  Company Number: ES-MYLANLABS-2023M1103675

PATIENT
  Age: 35 Year
  Sex: Male

DRUGS (3)
  1. TRAMADOL [Suspect]
     Active Substance: TRAMADOL\TRAMADOL HYDROCHLORIDE
     Indication: Product used for unknown indication
     Dosage: UNK (UP TO 2000MG)
     Route: 065
  2. AMITRIPTYLINE [Concomitant]
     Active Substance: AMITRIPTYLINE
     Dosage: UNK (UP TO 1375MG)
     Route: 065
  3. LORAZEPAM [Concomitant]
     Active Substance: LORAZEPAM
     Dosage: UNK (UP TO 13MG)
     Route: 065

REACTIONS (5)
  - Loss of consciousness [Unknown]
  - Generalised tonic-clonic seizure [Unknown]
  - Tachycardia [Unknown]
  - Hypotension [Unknown]
  - Overdose [Unknown]
